FAERS Safety Report 14864968 (Version 1)
Quarter: 2018Q2

REPORT INFORMATION
  Report Type: Spontaneous
  Country: US (occurrence: US)
  Receive Date: 20180508
  Receipt Date: 20180508
  Transmission Date: 20180711
  Serious: No
  Sender: FDA-Public Use
  Company Number: US-ALKERMES INC.-ALK-2017-004604

PATIENT
  Age: 34 Year
  Sex: Male
  Weight: 75.28 kg

DRUGS (2)
  1. VIVITROL [Suspect]
     Active Substance: NALTREXONE
     Dosage: 380 MG, QMO
     Route: 030
     Dates: start: 201611, end: 201612
  2. VIVITROL [Suspect]
     Active Substance: NALTREXONE
     Indication: DRUG DEPENDENCE
     Dosage: 380 MG, QMO
     Route: 030
     Dates: start: 20150101, end: 201605

REACTIONS (10)
  - Injection site reaction [Recovered/Resolved]
  - Malaise [Unknown]
  - Injection site pain [Recovered/Resolved]
  - Hernia [Not Recovered/Not Resolved]
  - Drug dependence [Unknown]
  - Decreased appetite [Unknown]
  - Fatigue [Unknown]
  - Injection site mass [Recovered/Resolved]
  - Injection site induration [Unknown]
  - Sluggishness [Unknown]

NARRATIVE: CASE EVENT DATE: 2015
